FAERS Safety Report 16503231 (Version 1)
Quarter: 2019Q2

REPORT INFORMATION
  Report Type: Spontaneous
  Country: US (occurrence: US)
  Receive Date: 20190521
  Receipt Date: 20190521
  Transmission Date: 20190711
  Serious: No
  Sender: FDA-Public Use
  Company Number: None

PATIENT
  Age: 73 Year
  Sex: Male
  Weight: 98.88 kg

DRUGS (2)
  1. REPATHA [Suspect]
     Active Substance: EVOLOCUMAB
     Indication: TYPE V HYPERLIPIDAEMIA
     Dosage: ?          OTHER FREQUENCY:EVERY 2 WKS ;?
     Route: 058
     Dates: start: 201904
  2. REPATHA [Suspect]
     Active Substance: EVOLOCUMAB
     Indication: ARTERIOSCLEROSIS CORONARY ARTERY
     Dosage: ?          OTHER FREQUENCY:EVERY 2 WKS ;?
     Route: 058
     Dates: start: 201904

REACTIONS (3)
  - Blood glucose increased [None]
  - Oropharyngeal pain [None]
  - Dizziness [None]
